FAERS Safety Report 10405834 (Version 1)
Quarter: 2014Q3

REPORT INFORMATION
  Report Type: Spontaneous
  Country: DE (occurrence: DE)
  Receive Date: 20140825
  Receipt Date: 20140825
  Transmission Date: 20150326
  Serious: Yes (Other)
  Sender: FDA-Public Use
  Company Number: GXKR2014DE003114

PATIENT
  Age: 72 Year
  Sex: Male

DRUGS (1)
  1. VALSARTAN HEXAL [Suspect]
     Active Substance: VALSARTAN
     Indication: HYPERTENSION
     Dosage: 160 MG, QD
     Route: 048
     Dates: start: 20140127, end: 20140630

REACTIONS (2)
  - Angioedema [Recovering/Resolving]
  - Ventricular extrasystoles [Recovered/Resolved]

NARRATIVE: CASE EVENT DATE: 20140401
